FAERS Safety Report 8245440 (Version 2)
Quarter: 2013Q2

REPORT INFORMATION
  Report Type: Report from Study
  Country: AR (occurrence: AR)
  Receive Date: 20111115
  Receipt Date: 20130417
  Transmission Date: 20140414
  Serious: Yes (Other)
  Sender: FDA-Public Use
  Company Number: PHHY2011AR098601

PATIENT
  Sex: Female

DRUGS (2)
  1. ONBREZ [Suspect]
     Indication: ASTHMA
     Dosage: 1 DF, BID
  2. ONBREZ [Suspect]
     Indication: OFF LABEL USE

REACTIONS (3)
  - Fall [Recovering/Resolving]
  - Wrist fracture [Recovering/Resolving]
  - Pain [Recovering/Resolving]
